FAERS Safety Report 5084795-2 (Version None)
Quarter: 2006Q3

REPORT INFORMATION
  Report Type: 
  Country: None (occurrence: None)
  Receive Date: 20060815
  Receipt Date: 20060728
  Transmission Date: 20061208
  Serious: Yes (Other)
  Sender: FDA-Public Use
  Company Number: CH200607005009

PATIENT
  Age: 47 Year
  Sex: Female

DRUGS (2)
  1. FLUCTINE(FLUOXETINE HYDROCHLORIDE) CAPSULE [Suspect]
     Indication: DEPRESSION
     Dosage: SEE IMAGE
     Route: 048
     Dates: start: 20060415, end: 20060517
  2. FLUCTINE(FLUOXETINE HYDROCHLORIDE) CAPSULE [Suspect]
     Indication: DEPRESSION
     Dosage: SEE IMAGE
     Route: 048
     Dates: start: 20060518, end: 20060612

REACTIONS (1)
  - THROMBOTIC STROKE [None]
